FAERS Safety Report 19417629 (Version 2)
Quarter: 2021Q2

REPORT INFORMATION
  Report Type: Spontaneous
  Country: FR (occurrence: FR)
  Receive Date: 20210615
  Receipt Date: 20210621
  Transmission Date: 20210717
  Serious: Yes (Hospitalization)
  Sender: FDA-Public Use
  Company Number: FR-TEVA-2021-FR-1921471

PATIENT
  Age: 61 Year
  Sex: Male

DRUGS (3)
  1. CARBOPLATINE [Suspect]
     Active Substance: CARBOPLATIN
     Indication: LUNG ADENOCARCINOMA
     Route: 042
     Dates: start: 20210315
  2. PEMBROLIZUMAB MK?3475 50 MG, POUDRE POUR SOLUTION POUR PERFUSION [Suspect]
     Active Substance: PEMBROLIZUMAB
     Indication: LUNG ADENOCARCINOMA
     Dosage: PEMBROLIZUMAB MK?3475 50 MG, POUDRE POUR SOLUTION POUR PERFUSION
     Route: 042
     Dates: start: 20210315
  3. PEMETREXED. [Suspect]
     Active Substance: PEMETREXED
     Indication: LUNG ADENOCARCINOMA
     Route: 042
     Dates: start: 20210315

REACTIONS (1)
  - Immune thrombocytopenia [Recovering/Resolving]

NARRATIVE: CASE EVENT DATE: 20210410
